FAERS Safety Report 5230324-X (Version None)
Quarter: 2007Q1

REPORT INFORMATION
  Report Type: 
  Country: None (occurrence: None)
  Receive Date: 20070206
  Receipt Date: 20070130
  Transmission Date: 20070707
  Serious: Yes (Other)
  Sender: FDA-Public Use
  Company Number: AU-GLAXOSMITHKLINE-B0457000A

PATIENT
  Age: 68 Year
  Sex: Female

DRUGS (3)
  1. CARTIA XT [Suspect]
     Indication: STENT PLACEMENT
     Route: 048
  2. WARFARIN SODIUM [Concomitant]
  3. ASTRIX [Concomitant]
     Dates: end: 20070115

REACTIONS (3)
  - DEAFNESS [None]
  - TINNITUS [None]
  - VERTIGO [None]
